FAERS Safety Report 4353905-4 (Version None)
Quarter: 2004Q2

REPORT INFORMATION
  Report Type: 
  Country: None (occurrence: None)
  Receive Date: 20040430
  Receipt Date: 20040420
  Transmission Date: 20050107
  Serious: Yes (Hospitalization)
  Sender: FDA-Public Use
  Company Number: JP-JNJFOC-20040404127

PATIENT
  Age: 51 Year
  Sex: Female

DRUGS (11)
  1. LEVOFLOXACIN [Suspect]
     Indication: BRONCHITIS
     Dosage: 100 MG, 2 IN 1 DAY, ORAL
     Route: 048
     Dates: start: 20040323, end: 20040327
  2. MUCOSTA (REBAMIPIDE) [Concomitant]
  3. ENALAPRIL MALEATE [Concomitant]
  4. PROTECADIN (PROTECTON) [Concomitant]
  5. NORVASC [Concomitant]
  6. LYSOZYME HYDROCHORIDE (LYSOZYME HYDROCHLORIDE) [Concomitant]
  7. MUCOBULIN (AMBROXOL HYDROCHLORIDE) [Concomitant]
  8. HUSTEN (DIHYDROCODEINE PHOSPHATE) [Concomitant]
  9. BROCIN (WILD CHERRY BARK) [Concomitant]
  10. APRICOT KERNEL WATER (APRICOT KERNEL WATER) [Concomitant]
  11. HOKUNALIN (TULOBUTEROL HYDROCHLORIDE) [Concomitant]

REACTIONS (1)
  - RHABDOMYOLYSIS [None]
